FAERS Safety Report 5149086-X (Version None)
Quarter: 2006Q4

REPORT INFORMATION
  Report Type: 
  Country: None (occurrence: None)
  Receive Date: 20061113
  Receipt Date: 20041118
  Transmission Date: 20070319
  Serious: Yes (Death, Other)
  Sender: FDA-Public Use
  Company Number: US-AMGEN-US100022

PATIENT
  Age: 55 Year
  Sex: Female

DRUGS (1)
  1. NEUPOGEN [Suspect]
     Indication: BLOOD STEM CELL HARVEST
     Dates: start: 19960401, end: 19960401

REACTIONS (2)
  - ACUTE MYELOID LEUKAEMIA [None]
  - ANAEMIA [None]
